FAERS Safety Report 16115680 (Version 1)
Quarter: 2019Q1

REPORT INFORMATION
  Report Type: Report from Study
  Country: FR (occurrence: FR)
  Receive Date: 20190326
  Receipt Date: 20190326
  Transmission Date: 20190418
  Serious: Yes (Other)
  Sender: FDA-Public Use
  Company Number: FR-PROVELL PHARMACEUTICALS-2064562

PATIENT
  Sex: Female

DRUGS (2)
  1. EUTHYROX [Suspect]
     Active Substance: LEVOTHYROXINE SODIUM
     Indication: AUTOIMMUNE THYROIDITIS
  2. IODINE. [Suspect]
     Active Substance: IODINE

REACTIONS (10)
  - Trichorrhexis [None]
  - Chest pain [None]
  - Appendicitis [None]
  - Hypothyroidism [None]
  - Anxiety [None]
  - Decreased appetite [None]
  - Helicobacter infection [None]
  - Fatigue [None]
  - Hypersomnia [None]
  - Nausea [None]
